FAERS Safety Report 5119429-1 (Version None)
Quarter: 2006Q3

REPORT INFORMATION
  Report Type: 
  Country: None (occurrence: None)
  Receive Date: 20060928
  Receipt Date: 20060913
  Transmission Date: 20061208
  Serious: Yes (Hospitalization)
  Sender: FDA-Public Use
  Company Number: 24920

PATIENT
  Age: 72 Year
  Sex: Male
  Weight: 89.8122 kg

DRUGS (8)
  1. NIASPAN [Suspect]
     Indication: BLOOD CHOLESTEROL INCREASED
     Dosage: 500 MG QHS PO
     Route: 048
     Dates: start: 20040101, end: 20060218
  2. ADVICOR [Suspect]
     Indication: BLOOD CHOLESTEROL INCREASED
     Dosage: 1 TABLET (S) QHS PO
     Route: 048
     Dates: start: 20040101, end: 20060218
  3. ASPIRIN [Suspect]
     Indication: FLUSHING
     Dosage: 325 MG QHS PO
     Route: 048
     Dates: end: 20060218
  4. ASPIRIN [Suspect]
     Indication: PROPHYLAXIS
     Dosage: 325 MG QHS PO
     Route: 048
     Dates: end: 20060218
  5. FLOMAX [Concomitant]
  6. KLONOPIN [Concomitant]
  7. WELLBUTRIN [Concomitant]
  8. XANAX [Concomitant]

REACTIONS (3)
  - HELICOBACTER INFECTION [None]
  - PEPTIC ULCER HAEMORRHAGE [None]
  - ULCER [None]
